FAERS Safety Report 11291630 (Version 1)
Quarter: 2015Q3

REPORT INFORMATION
  Report Type: Spontaneous
  Country: US (occurrence: US)
  Receive Date: 20150722
  Receipt Date: 20150722
  Transmission Date: 20151125
  Serious: No
  Sender: FDA-Public Use
  Company Number: US-PFIZER INC-2015234921

PATIENT
  Age: 63 Year
  Sex: Female

DRUGS (2)
  1. TETRACYCLINE HCL [Suspect]
     Active Substance: TETRACYCLINE HYDROCHLORIDE
     Dosage: UNK
  2. EMYCIN /00020901/ [Suspect]
     Active Substance: ERYTHROMYCIN
     Dosage: UNK

REACTIONS (1)
  - Drug hypersensitivity [Unknown]
